FAERS Safety Report 9211025 (Version 1)
Quarter: 2013Q2

REPORT INFORMATION
  Report Type: Spontaneous
  Country: US (occurrence: US)
  Receive Date: 20130404
  Receipt Date: 20130404
  Transmission Date: 20140414
  Serious: Yes (Hospitalization, Other)
  Sender: FDA-Public Use
  Company Number: US-GILEAD-2012-0065689

PATIENT
  Age: 12 Year
  Sex: Female

DRUGS (10)
  1. LETAIRIS [Suspect]
     Indication: PULMONARY HYPERTENSION
     Dosage: 5 MG, QD
     Route: 048
     Dates: start: 20121016, end: 20121130
  2. LETAIRIS [Suspect]
     Indication: PULMONARY VASCULITIS
  3. LETAIRIS [Suspect]
     Indication: PULMONARY ARTERY STENOSIS CONGENITAL
  4. PREDNISONE [Concomitant]
  5. ALBUTEROL                          /00139501/ [Concomitant]
  6. ADVAIR [Concomitant]
  7. TADALAFIL [Concomitant]
  8. METADATE [Concomitant]
  9. ZOFRAN                             /00955301/ [Concomitant]
  10. ZANTAC [Concomitant]

REACTIONS (2)
  - Malaise [Recovered/Resolved]
  - No therapeutic response [Unknown]
